FAERS Safety Report 4636701-X (Version None)
Quarter: 2005Q2

REPORT INFORMATION
  Report Type: 
  Country: None (occurrence: None)
  Receive Date: 20050414
  Receipt Date: 20050401
  Transmission Date: 20051028
  Serious: Yes (Death, Hospitalization, Other)
  Sender: FDA-Public Use
  Company Number: 2002068744

PATIENT
  Age: 81 Year
  Sex: Male

DRUGS (7)
  1. LIPITOR [Suspect]
     Indication: DYSLIPIDAEMIA
     Dosage: 20 MG (20 MG, 1 IN 1 D), ORAL
     Route: 048
     Dates: start: 20020701
  2. TRIMETAZIDINE (TRIMETAZIDINE) [Concomitant]
  3. ATENOLOL [Concomitant]
  4. ISOSORBIDE MONONITRATE [Concomitant]
  5. TICLOPIDINE (TICLOPIDINE) [Concomitant]
  6. DILTIAZEM [Concomitant]
  7. PROPATHYLNITRATE (PROPATYLNITRATE) [Concomitant]

REACTIONS (6)
  - ASTHENIA [None]
  - CEREBROVASCULAR ACCIDENT [None]
  - CHEST PAIN [None]
  - CORONARY ARTERY OCCLUSION [None]
  - SEPSIS [None]
  - URINARY TRACT INFECTION [None]
